FAERS Safety Report 15248786 (Version 1)
Quarter: 2018Q3

REPORT INFORMATION
  Report Type: Spontaneous
  Country: US (occurrence: US)
  Receive Date: 20180716
  Receipt Date: 20180716
  Transmission Date: 20181010
  Serious: No
  Sender: FDA-Public Use
  Company Number: None

PATIENT
  Age: 48 Year
  Sex: Female

DRUGS (1)
  1. MAVYRET [Suspect]
     Active Substance: GLECAPREVIR\PIBRENTASVIR
     Dates: start: 20180505, end: 20180516

REACTIONS (4)
  - Depression [None]
  - Upper respiratory tract infection [None]
  - Ear infection [None]
  - Pain [None]

NARRATIVE: CASE EVENT DATE: 20180716
